FAERS Safety Report 8984902 (Version 2)
Quarter: 2013Q1

REPORT INFORMATION
  Report Type: Spontaneous
  Country: US (occurrence: US)
  Receive Date: 20121225
  Receipt Date: 20130122
  Transmission Date: 20140127
  Serious: Yes (Other)
  Sender: FDA-Public Use
  Company Number: US-AMGEN-USASP2012081753

PATIENT
  Age: 65 Year
  Sex: Male
  Weight: 78.01 kg

DRUGS (6)
  1. XGEVA [Suspect]
     Indication: METASTASES TO BONE
     Dosage: 120 MG, QMO
     Route: 058
     Dates: start: 20121119, end: 20121219
  2. FIRMAGON                           /01764801/ [Concomitant]
     Indication: PROSTATE CANCER
     Dosage: 80 MG, QMO
     Route: 058
     Dates: start: 20120424
  3. FLOMAX                             /01280302/ [Concomitant]
     Indication: PROSTATE CANCER
     Dosage: 0.4 MG, UNK
     Route: 048
     Dates: start: 2010
  4. VICODIN [Concomitant]
     Indication: PROSTATE CANCER
     Dosage: 5/325, Q4H
     Route: 048
     Dates: start: 201206
  5. DICLOFENAC [Concomitant]
     Indication: OSTEOARTHRITIS
     Dosage: 75 MG, BID
     Route: 048
     Dates: start: 2008
  6. MULTIVITAMIN                       /00097801/ [Concomitant]
     Dosage: 1 UNK, QD
     Route: 048
     Dates: start: 2007

REACTIONS (1)
  - Rash maculo-papular [Recovered/Resolved]
